FAERS Safety Report 7926366-3 (Version None)
Quarter: 2011Q4

REPORT INFORMATION
  Report Type: 
  Country: None (occurrence: None)
  Receive Date: 20111118
  Receipt Date: 20111108
  Transmission Date: 20120403
  Serious: No
  Sender: FDA-Public Use
  Company Number: US-BIOGENIDEC-2011BI042646

PATIENT
  Age: 45 Year
  Sex: Female

DRUGS (1)
  1. TYSABRI [Suspect]
     Indication: MULTIPLE SCLEROSIS
     Route: 042
     Dates: start: 20100830

REACTIONS (10)
  - PAIN IN EXTREMITY [None]
  - MUSCLE SPASMS [None]
  - STRESS [None]
  - MUSCLE TIGHTNESS [None]
  - HYPOAESTHESIA [None]
  - INSOMNIA [None]
  - MALAISE [None]
  - GENERAL SYMPTOM [None]
  - ARTHRALGIA [None]
  - FATIGUE [None]
